FAERS Safety Report 16364100 (Version 1)
Quarter: 2019Q2

REPORT INFORMATION
  Report Type: Spontaneous
  Country: CA (occurrence: CA)
  Receive Date: 20190528
  Receipt Date: 20190528
  Transmission Date: 20190711
  Serious: Yes (Other)
  Sender: FDA-Public Use
  Company Number: CA-SHIRE-CA201916117

PATIENT

DRUGS (2)
  1. GAMMAGARD LIQUID [Suspect]
     Active Substance: HUMAN IMMUNOGLOBULIN G
     Dosage: 20 MILLILITER
     Route: 065
     Dates: start: 20181018
  2. GAMMAGARD LIQUID [Suspect]
     Active Substance: HUMAN IMMUNOGLOBULIN G
     Indication: PRODUCT USED FOR UNKNOWN INDICATION
     Dosage: 48 MILLILITER
     Route: 065
     Dates: start: 20181018, end: 20181018

REACTIONS (4)
  - Infusion related reaction [Unknown]
  - Staphylococcal infection [Unknown]
  - Nausea [Unknown]
  - Chills [Unknown]
